FAERS Safety Report 5664675-1 (Version None)
Quarter: 2008Q1

REPORT INFORMATION
  Report Type: 
  Country: None (occurrence: None)
  Receive Date: 20080314
  Receipt Date: 20080307
  Transmission Date: 20080703
  Serious: Yes (Other)
  Sender: FDA-Public Use
  Company Number: GB-ROCHE-551874

PATIENT
  Age: 30 Year
  Sex: Female
  Weight: 145 kg

DRUGS (2)
  1. ORLISTAT [Suspect]
     Indication: OBESITY
     Dosage: IT WAS REPORTED THAT THE PATIENT WAS STILL TAKING OLRISTAT BUT NOT REGULARLY.
     Route: 048
     Dates: start: 20071204
  2. MORPHINE [Concomitant]

REACTIONS (2)
  - DEPRESSION [None]
  - SELF INJURIOUS BEHAVIOUR [None]
